FAERS Safety Report 21049623 (Version 1)
Quarter: 2022Q3

REPORT INFORMATION
  Report Type: Spontaneous
  Country: BR (occurrence: BR)
  Receive Date: 20220706
  Receipt Date: 20220706
  Transmission Date: 20221026
  Serious: Yes (Other)
  Sender: FDA-Public Use
  Company Number: BR-PFIZER INC-PV202200013028

PATIENT
  Age: 65 Year
  Sex: Male

DRUGS (2)
  1. MEROPENEM [Suspect]
     Active Substance: MEROPENEM
     Indication: Haemodynamic instability
     Dosage: UNK
     Dates: start: 20220331
  2. MEROPENEM [Suspect]
     Active Substance: MEROPENEM
     Indication: Osteomyelitis

REACTIONS (3)
  - Status epilepticus [Unknown]
  - Metabolic encephalopathy [Unknown]
  - Hepatic encephalopathy [Unknown]

NARRATIVE: CASE EVENT DATE: 20220407
